FAERS Safety Report 6273251-1 (Version None)
Quarter: 2009Q3

REPORT INFORMATION
  Report Type: 
  Country: None (occurrence: None)
  Receive Date: 20090720
  Receipt Date: 20090618
  Transmission Date: 20100115
  Serious: No
  Sender: FDA-Public Use
  Company Number: US-BAYER-200923109NA

PATIENT
  Age: 29 Year
  Sex: Male
  Weight: 75 kg

DRUGS (1)
  1. LEVITRA [Suspect]
     Indication: BACK INJURY
     Dosage: TRIAL PACKAGE/ONE TABLET DAILY
     Dates: start: 20090526

REACTIONS (4)
  - DIZZINESS [None]
  - ERECTION INCREASED [None]
  - FATIGUE [None]
  - ORGASM ABNORMAL [None]
